FAERS Safety Report 4581308-6 (Version None)
Quarter: 2005Q1

REPORT INFORMATION
  Report Type: 
  Country: None (occurrence: None)
  Receive Date: 20050127
  Receipt Date: 20040820
  Transmission Date: 20050727
  Serious: No
  Sender: FDA-Public Use
  Company Number: USA040876175

PATIENT
  Age: 62 Year
  Sex: Female
  Weight: 73 kg

DRUGS (4)
  1. STRATTERA [Suspect]
     Dosage: 40 MG DAY
     Dates: start: 20040813
  2. ZOLOFT [Concomitant]
  3. CARDIZEM (DILTIAZEM HYDROCLORIDE) [Concomitant]
  4. PRAVACHOL [Concomitant]

REACTIONS (1)
  - DEPRESSION [None]
